FAERS Safety Report 17779113 (Version 4)
Quarter: 2020Q3

REPORT INFORMATION
  Report Type: Spontaneous
  Country: US (occurrence: US)
  Receive Date: 20200513
  Receipt Date: 20200803
  Transmission Date: 20201102
  Serious: Yes (Other)
  Sender: FDA-Public Use
  Company Number: US-ALLERGAN-2018622US

PATIENT
  Sex: Female
  Weight: 68.04 kg

DRUGS (2)
  1. PREMARIN [Suspect]
     Active Substance: ESTROGENS, CONJUGATED
     Indication: HOT FLUSH
     Dosage: 0.45 MG, QD
     Route: 048
  2. RESTASIS [Suspect]
     Active Substance: CYCLOSPORINE
     Indication: PRODUCT USED FOR UNKNOWN INDICATION
     Dosage: UNK, BID
     Route: 065

REACTIONS (11)
  - Spinal disorder [Recovered/Resolved]
  - Spinal stenosis [Unknown]
  - Arthropathy [Not Recovered/Not Resolved]
  - Peripheral swelling [Unknown]
  - Eye infection [Unknown]
  - Gait disturbance [Unknown]
  - Fall [Recovered/Resolved]
  - Visual impairment [Unknown]
  - Intervertebral disc protrusion [Recovering/Resolving]
  - Cataract [Unknown]
  - Pain in extremity [Unknown]

NARRATIVE: CASE EVENT DATE: 2006
